FAERS Safety Report 6381699-X (Version None)
Quarter: 2009Q3

REPORT INFORMATION
  Report Type: 
  Country: None (occurrence: None)
  Receive Date: 20090930
  Receipt Date: 20090917
  Transmission Date: 20100115
  Serious: Yes (Hospitalization)
  Sender: FDA-Public Use
  Company Number: PHHY2009JP36697

PATIENT
  Sex: Female
  Weight: 55 kg

DRUGS (5)
  1. DIOVAN [Suspect]
     Indication: HYPERTENSION
     Dosage: 40 MG DAILY
     Route: 048
     Dates: start: 20081023
  2. KETOPROFEN [Concomitant]
  3. AMLODIPINE [Concomitant]
     Indication: HYPERTENSION
     Dosage: 2.5 MG, UNK
     Route: 048
     Dates: start: 20081009
  4. BUFFERIN [Concomitant]
     Indication: CEREBRAL INFARCTION
     Dosage: 81 MG, UNK
     Route: 048
     Dates: start: 20081009
  5. ROHYPNOL [Concomitant]
     Indication: INSOMNIA
     Dosage: 1 MG, UNK
     Route: 048
     Dates: start: 20081218

REACTIONS (3)
  - ACUTE MYOCARDIAL INFARCTION [None]
  - CHEST PAIN [None]
  - STENT PLACEMENT [None]
